FAERS Safety Report 9916283 (Version 1)
Quarter: 2014Q1

REPORT INFORMATION
  Report Type: Spontaneous
  Country: NL (occurrence: NL)
  Receive Date: 20140221
  Receipt Date: 20140221
  Transmission Date: 20141002
  Serious: Yes (Other)
  Sender: FDA-Public Use
  Company Number: PHHY2014NL020843

PATIENT
  Sex: 0

DRUGS (1)
  1. ILARIS [Suspect]
     Dosage: 150 MG, EVERY 6 WEEKS

REACTIONS (1)
  - Renal failure [Unknown]
